FAERS Safety Report 9756643 (Version 2)
Quarter: 2013Q4

REPORT INFORMATION
  Report Type: Report from Study
  Country: US (occurrence: US)
  Receive Date: 20131213
  Receipt Date: 20131217
  Transmission Date: 20140711
  Serious: Yes (Other)
  Sender: FDA-Public Use
  Company Number: US-BAXTER-2013BAX049618

PATIENT
  Age: 30 Year
  Sex: Female

DRUGS (2)
  1. GAMMAGARD S/D [Suspect]
     Indication: PRIMARY IMMUNODEFICIENCY SYNDROME
     Route: 042
  2. BACTRIM [Concomitant]
     Indication: PROPHYLAXIS
     Dosage: DOUBLE-STRENGTH DAILY
     Route: 065

REACTIONS (1)
  - Infection [Unknown]
